FAERS Safety Report 18226664 (Version 1)
Quarter: 2020Q3

REPORT INFORMATION
  Report Type: Spontaneous
  Country: VN (occurrence: VN)
  Receive Date: 20200903
  Receipt Date: 20200903
  Transmission Date: 20201103
  Serious: Yes (Other)
  Sender: FDA-Public Use
  Company Number: VN-ROCHE-2670199

PATIENT
  Age: 77 Year
  Sex: Female
  Weight: 54 kg

DRUGS (5)
  1. ACTILYSE [Suspect]
     Active Substance: ALTEPLASE
     Indication: ISCHAEMIC STROKE
     Route: 042
     Dates: start: 20200712, end: 20200712
  2. FELODIPINE. [Concomitant]
     Active Substance: FELODIPINE
     Indication: HYPERTENSION
     Route: 065
  3. BENSERAZIDE;LEVODOPA [Concomitant]
     Active Substance: BENSERAZIDE\LEVODOPA
     Indication: PARKINSON^S DISEASE
     Dosage: STRENGTH: 50MG/200MG?1/4 CAPSULE TID
     Route: 065
  4. METOPROLOL. [Concomitant]
     Active Substance: METOPROLOL
     Indication: HYPERTENSION
     Route: 065
  5. DONEPEZIL. [Concomitant]
     Active Substance: DONEPEZIL
     Indication: DEMENTIA
     Route: 065

REACTIONS (4)
  - Atrial fibrillation [Unknown]
  - Left ventricular dysfunction [Unknown]
  - Haemorrhagic transformation stroke [Recovered/Resolved]
  - Left ventricular hypertrophy [Unknown]

NARRATIVE: CASE EVENT DATE: 20200713
